FAERS Safety Report 24599534 (Version 1)
Quarter: 2024Q4

REPORT INFORMATION
  Report Type: Spontaneous
  Country: US (occurrence: US)
  Receive Date: 20241110
  Receipt Date: 20241110
  Transmission Date: 20250114
  Serious: No
  Sender: SANOFI AVENTIS
  Company Number: US-SA-2024SA320197

PATIENT
  Sex: Female

DRUGS (8)
  1. KEVZARA [Suspect]
     Active Substance: SARILUMAB
     Indication: Polyarthritis
     Dosage: 200 MG, QOW
     Route: 058
  2. ALBUTEROL SULFATE [Concomitant]
     Active Substance: ALBUTEROL SULFATE
  3. AMLODIPINE BESYLATE [Concomitant]
     Active Substance: AMLODIPINE BESYLATE
  4. FLUTICASONE [Concomitant]
     Active Substance: FLUTICASONE
  5. HYDROCODONE [Concomitant]
     Active Substance: HYDROCODONE
  6. LIDOCAINE [Concomitant]
     Active Substance: LIDOCAINE
  7. NEOMYCIN [Concomitant]
     Active Substance: NEOMYCIN
  8. OXYCODONE [Concomitant]
     Active Substance: OXYCODONE

REACTIONS (3)
  - Arthralgia [Unknown]
  - Gait disturbance [Unknown]
  - Product use in unapproved indication [Unknown]
